FAERS Safety Report 5014610-4 (Version None)
Quarter: 2006Q2

REPORT INFORMATION
  Report Type: 
  Country: None (occurrence: None)
  Receive Date: 20060531
  Receipt Date: 20051014
  Transmission Date: 20061013
  Serious: Yes (Death)
  Sender: FDA-Public Use
  Company Number: US-BRISTOL-MYERS SQUIBB COMPANY-13146394

PATIENT
  Age: 13 Year
  Sex: Male

DRUGS (9)
  1. ABILIFY [Suspect]
     Dosage: INCREASED TO 10 MG DAILY
     Dates: start: 20030101
  2. RISPERIDONE [Suspect]
     Dosage: 1 MG IN A.M., 2 MG AT BEDTIME
     Route: 048
  3. SEROQUEL [Suspect]
     Dosage: 50 MG IN A.M., 150 MG AT BEDTIME
     Dates: end: 20030101
  4. PROZAC [Concomitant]
     Route: 048
  5. EFFEXOR [Concomitant]
  6. ADDERALL 10 [Concomitant]
  7. RAMIPRIL [Concomitant]
     Route: 048
  8. CAPTOPRIL [Concomitant]
     Route: 048
  9. FLUOXETINE [Concomitant]
     Route: 048

REACTIONS (5)
  - DYSKINESIA [None]
  - HEART TRANSPLANT [None]
  - OBSESSIVE-COMPULSIVE DISORDER [None]
  - PSYCHOMOTOR HYPERACTIVITY [None]
  - THIRST [None]
